FAERS Safety Report 24059798 (Version 1)
Quarter: 2024Q3

REPORT INFORMATION
  Report Type: Spontaneous
  Country: AU (occurrence: AU)
  Receive Date: 20240708
  Receipt Date: 20240708
  Transmission Date: 20241017
  Serious: Yes (Other)
  Sender: BAUSCH AND LOMB
  Company Number: AU-BAUSCHBL-2024BNL029414

PATIENT
  Age: 18 Year
  Sex: Female

DRUGS (4)
  1. PREDNISOLONE [Suspect]
     Active Substance: PREDNISOLONE
     Indication: Product used for unknown indication
     Route: 065
  2. ENTYVIO [Suspect]
     Active Substance: VEDOLIZUMAB
     Indication: Product used for unknown indication
     Route: 065
  3. PENTASA [Suspect]
     Active Substance: MESALAMINE
     Indication: Product used for unknown indication
     Route: 065
  4. AZATHIOPRINE [Suspect]
     Active Substance: AZATHIOPRINE
     Indication: Product used for unknown indication
     Route: 065

REACTIONS (14)
  - Crohn^s disease [Unknown]
  - COVID-19 [Unknown]
  - Impaired work ability [Unknown]
  - Arthralgia [Unknown]
  - Affective disorder [Unknown]
  - Abdominal discomfort [Unknown]
  - Asthenia [Unknown]
  - Drug level fluctuating [Unknown]
  - Gastric mucosa erythema [Unknown]
  - Iron deficiency [Unknown]
  - Lethargy [Unknown]
  - Nausea [Unknown]
  - Weight increased [Unknown]
  - Product use complaint [Unknown]
